FAERS Safety Report 21804207 (Version 4)
Quarter: 2024Q1

REPORT INFORMATION
  Report Type: Report from Study
  Country: US (occurrence: US)
  Receive Date: 20230102
  Receipt Date: 20240310
  Transmission Date: 20240409
  Serious: Yes (Other)
  Sender: FDA-Public Use
  Company Number: US-ABBVIE-4255092

PATIENT
  Age: 73 Year
  Sex: Male

DRUGS (2)
  1. IMBRUVICA [Suspect]
     Active Substance: IBRUTINIB
     Indication: Chronic lymphocytic leukaemia
     Route: 048
     Dates: start: 20220707, end: 20221130
  2. IMBRUVICA [Suspect]
     Active Substance: IBRUTINIB
     Indication: Chronic lymphocytic leukaemia
     Route: 048
     Dates: start: 20230317

REACTIONS (6)
  - Gallbladder operation [Recovered/Resolved]
  - COVID-19 [Recovered/Resolved]
  - Renal disorder [Unknown]
  - Aphonia [Recovering/Resolving]
  - Sinusitis [Recovered/Resolved]
  - Renal neoplasm [Recovering/Resolving]

NARRATIVE: CASE EVENT DATE: 20221130
